FAERS Safety Report 7831468-6 (Version None)
Quarter: 2011Q4

REPORT INFORMATION
  Report Type: 
  Country: None (occurrence: None)
  Receive Date: 20111021
  Receipt Date: 20111021
  Transmission Date: 20120403
  Serious: Yes (Hospitalization)
  Sender: FDA-Public Use
  Company Number: None

PATIENT
  Sex: Male
  Weight: 57 kg

DRUGS (1)
  1. ANAGRELIDE HCL [Suspect]
     Indication: THROMBOCYTOSIS
     Dosage: 1 MG
     Route: 048

REACTIONS (4)
  - FAECES DISCOLOURED [None]
  - HAEMOGLOBIN DECREASED [None]
  - CHEST PAIN [None]
  - DYSPNOEA EXERTIONAL [None]
